FAERS Safety Report 9906371 (Version 3)
Quarter: 2015Q3

REPORT INFORMATION
  Report Type: Spontaneous
  Country: US (occurrence: US)
  Receive Date: 20140218
  Receipt Date: 20150811
  Transmission Date: 20151125
  Serious: No
  Sender: FDA-Public Use
  Company Number: US-GILEAD-2012-0050748

PATIENT
  Age: 55 Year
  Sex: Male

DRUGS (3)
  1. LETAIRIS [Suspect]
     Active Substance: AMBRISENTAN
     Indication: PULMONARY HYPERTENSION
     Dosage: 10 MG, UNK
     Route: 048
  2. LETAIRIS [Suspect]
     Active Substance: AMBRISENTAN
     Indication: HIV INFECTION
  3. VENTAVIS [Concomitant]
     Active Substance: ILOPROST

REACTIONS (5)
  - Dizziness [Unknown]
  - Flushing [Unknown]
  - Nausea [Recovered/Resolved]
  - Headache [Unknown]
  - Cough [Unknown]
